FAERS Safety Report 5211808-7 (Version None)
Quarter: 2007Q1

REPORT INFORMATION
  Report Type: 
  Country: None (occurrence: None)
  Receive Date: 20070116
  Receipt Date: 20070116
  Transmission Date: 20070707
  Serious: Yes (Other)
  Sender: FDA-Public Use
  Company Number: None

PATIENT
  Age: 63 Year
  Sex: Male
  Weight: 77.5651 kg

DRUGS (11)
  1. PACLITAXEL [Suspect]
     Indication: NON-SMALL CELL LUNG CANCER
     Dosage: 400MG PER CYCLE IV
     Route: 042
     Dates: start: 20061017
  2. PACLITAXEL [Suspect]
     Indication: NON-SMALL CELL LUNG CANCER
     Dosage: 400MG PER CYCLE IV
     Route: 042
     Dates: start: 20061107
  3. ATIVAN [Concomitant]
  4. BENADRYL [Concomitant]
  5. DECADRON [Concomitant]
  6. BEVACIZUMAB [Concomitant]
  7. CARBOPLATIN [Concomitant]
  8. DARBEPOETIN [Concomitant]
  9. METOCLOPRAMIDE [Concomitant]
  10. FAMOTIDINE [Concomitant]
  11. ONDANSETRON [Concomitant]

REACTIONS (3)
  - FEELING HOT [None]
  - FLUSHING [None]
  - INFUSION RELATED REACTION [None]
